FAERS Safety Report 5350133-0 (Version None)
Quarter: 2007Q2

REPORT INFORMATION
  Report Type: 
  Country: None (occurrence: None)
  Receive Date: 20070607
  Receipt Date: 20070530
  Transmission Date: 20071010
  Serious: Yes (Hospitalization)
  Sender: FDA-Public Use
  Company Number: US-MERCK-0706USA00071

PATIENT

DRUGS (3)
  1. VYTORIN [Suspect]
     Indication: BLOOD CHOLESTEROL
     Route: 048
     Dates: end: 20070501
  2. NORVASC [Concomitant]
     Indication: BLOOD CHOLESTEROL
     Route: 065
  3. NIACIN [Concomitant]
     Route: 065

REACTIONS (1)
  - MUSCLE DISORDER [None]
